FAERS Safety Report 25417845 (Version 1)
Quarter: 2025Q2

REPORT INFORMATION
  Report Type: Other
  Country: LV (occurrence: LV)
  Receive Date: 20250610
  Receipt Date: 20250610
  Transmission Date: 20250716
  Serious: Yes (Hospitalization, Other)
  Sender: ANI
  Company Number: LV-ANIPHARMA-023124

PATIENT
  Age: 72 Year
  Sex: Male

DRUGS (8)
  1. PERINDOPRIL [Suspect]
     Active Substance: PERINDOPRIL
     Indication: Hypertension
  2. FUROSEMIDE [Suspect]
     Active Substance: FUROSEMIDE
     Indication: Polyuria
  3. METFORMIN [Concomitant]
     Active Substance: METFORMIN HYDROCHLORIDE
     Indication: Diabetes mellitus
  4. TELMISARTAN [Concomitant]
     Active Substance: TELMISARTAN
     Indication: Product used for unknown indication
  5. FENTANYL [Concomitant]
     Active Substance: FENTANYL
     Indication: Mechanical ventilation
  6. MIDAZOLAM [Concomitant]
     Active Substance: MIDAZOLAM
     Indication: Mechanical ventilation
  7. PROPOFOL [Concomitant]
     Active Substance: PROPOFOL
     Indication: Mechanical ventilation
  8. CISATRACURIUM BESYLATE [Concomitant]
     Active Substance: CISATRACURIUM BESYLATE
     Indication: Mechanical ventilation

REACTIONS (3)
  - Negative pressure pulmonary oedema [Recovered/Resolved]
  - Angioedema [Not Recovered/Not Resolved]
  - Drug ineffective [Unknown]
